FAERS Safety Report 19661856 (Version 1)
Quarter: 2021Q3

REPORT INFORMATION
  Report Type: Spontaneous
  Country: FR (occurrence: FR)
  Receive Date: 20210805
  Receipt Date: 20210805
  Transmission Date: 20211014
  Serious: Yes (Other)
  Sender: FDA-Public Use
  Company Number: FR-FRESENIUS KABI-FK202108142

PATIENT
  Age: 71 Year
  Sex: Female

DRUGS (2)
  1. GEMCITABINE. [Suspect]
     Active Substance: GEMCITABINE
     Indication: NEOPLASM
     Dosage: TWO COURSES
     Route: 065
     Dates: start: 201403
  2. DACARBAZINE. [Suspect]
     Active Substance: DACARBAZINE
     Indication: NEOPLASM
     Dosage: TWO COURSES
     Route: 065
     Dates: start: 201403

REACTIONS (1)
  - Haematotoxicity [Unknown]
